FAERS Safety Report 4276510-7 (Version None)
Quarter: 2004Q1

REPORT INFORMATION
  Report Type: 
  Country: None (occurrence: None)
  Receive Date: 20040120
  Receipt Date: 20040105
  Transmission Date: 20041129
  Serious: Yes (Other)
  Sender: FDA-Public Use
  Company Number: 200312175

PATIENT
  Age: 77 Year
  Sex: Female

DRUGS (5)
  1. ZYMAR [Suspect]
     Indication: CONJUNCTIVITIS BACTERIAL
     Dosage: DROP
  2. ERYTHROMYCIN [Concomitant]
  3. OCUFLOX [Concomitant]
  4. PRED FORTE [Concomitant]
  5. TIMOLOL MALEATE [Concomitant]

REACTIONS (7)
  - CONDITION AGGRAVATED [None]
  - CONJUNCTIVITIS [None]
  - CORNEAL EPITHELIUM DEFECT [None]
  - CORNEAL OEDEMA [None]
  - CORNEAL ULCER [None]
  - DACRYOCYSTITIS INFECTIVE [None]
  - NAUSEA [None]
